FAERS Safety Report 4970936-1 (Version None)
Quarter: 2006Q2

REPORT INFORMATION
  Report Type: 
  Country: None (occurrence: None)
  Receive Date: 20060412
  Receipt Date: 20060126
  Transmission Date: 20061013
  Serious: Yes (Other)
  Sender: FDA-Public Use
  Company Number: US-ROCHE-434095

PATIENT
  Age: 48 Year
  Sex: Female
  Weight: 101.6 kg

DRUGS (8)
  1. PEGASYS [Suspect]
     Route: 058
     Dates: start: 20050623
  2. COPEGUS [Suspect]
     Route: 048
     Dates: start: 20050623
  3. ATENOLOL [Concomitant]
     Indication: HYPERTENSION
  4. PREVACID [Concomitant]
  5. PAXIL [Concomitant]
     Indication: DEPRESSION
  6. ZYBAN [Concomitant]
  7. BENADRYL [Concomitant]
  8. RIBAVIRIN [Concomitant]

REACTIONS (7)
  - ANAEMIA MACROCYTIC [None]
  - ANGINA PECTORIS [None]
  - HYPERPARATHYROIDISM [None]
  - PROTEIN URINE PRESENT [None]
  - PYELONEPHRITIS [None]
  - STOMATITIS [None]
  - VENTRICULAR HYPERTROPHY [None]
